FAERS Safety Report 18277354 (Version 3)
Quarter: 2021Q1

REPORT INFORMATION
  Report Type: Report from Study
  Country: AU (occurrence: AU)
  Receive Date: 20200917
  Receipt Date: 20210210
  Transmission Date: 20210419
  Serious: Yes (Hospitalization, Other)
  Sender: FDA-Public Use
  Company Number: AU-REGENERON PHARMACEUTICALS, INC.-2020-76387

PATIENT

DRUGS (4)
  1. EYLEA [Suspect]
     Active Substance: AFLIBERCEPT
     Indication: DIABETIC RETINAL OEDEMA
     Dosage: EVERY 2?3 WEEKS
     Route: 031
     Dates: start: 2019
  2. PREDNISONE. [Concomitant]
     Active Substance: PREDNISONE
     Indication: MYALGIA
     Dosage: 3 MG
  3. EYLEA [Suspect]
     Active Substance: AFLIBERCEPT
     Dosage: 1 DF, ONCE (RIGHT EYE)
     Route: 031
     Dates: start: 20201130, end: 20201205
  4. PREDNISONE. [Concomitant]
     Active Substance: PREDNISONE
     Dosage: 4 MG

REACTIONS (7)
  - Ketoacidosis [Recovering/Resolving]
  - Visual impairment [Recovered/Resolved]
  - Parkinson^s disease [Not Recovered/Not Resolved]
  - Visual impairment [Not Recovered/Not Resolved]
  - Hallucination, visual [Not Recovered/Not Resolved]
  - Drug ineffective [Unknown]
  - Visual impairment [Unknown]

NARRATIVE: CASE EVENT DATE: 20201130
